FAERS Safety Report 16577882 (Version 1)
Quarter: 2019Q3

REPORT INFORMATION
  Report Type: Spontaneous
  Country: US (occurrence: US)
  Receive Date: 20190716
  Receipt Date: 20190716
  Transmission Date: 20191004
  Serious: No
  Sender: FDA-Public Use
  Company Number: US-PFIZER INC-2019297007

PATIENT
  Age: 49 Year
  Sex: Female

DRUGS (1)
  1. TALZENNA [Suspect]
     Active Substance: TALAZOPARIB TOSYLATE
     Dosage: 1 MG, ONCE A DAY
     Route: 048
     Dates: start: 20190516

REACTIONS (2)
  - Dry mouth [Unknown]
  - Migraine [Unknown]
